FAERS Safety Report 24274748 (Version 1)
Quarter: 2024Q3

REPORT INFORMATION
  Report Type: Spontaneous
  Country: PL (occurrence: PL)
  Receive Date: 20240902
  Receipt Date: 20240902
  Transmission Date: 20241016
  Serious: Yes (Life-Threatening, Other)
  Sender: TEVA
  Company Number: None

PATIENT
  Age: 64 Year
  Sex: Female

DRUGS (4)
  1. DICLOFENAC [Suspect]
     Active Substance: DICLOFENAC
     Indication: Arthralgia
     Route: 048
     Dates: start: 20200513, end: 20200519
  2. FURAZIDINE [Concomitant]
     Active Substance: FURAZIDINE
     Indication: Cystitis
     Route: 048
     Dates: start: 20200512, end: 20200519
  3. FURAZIDINE [Concomitant]
     Active Substance: FURAZIDINE
     Indication: Cystitis
     Route: 048
     Dates: start: 20200512, end: 20200519
  4. Urosept [Concomitant]
     Indication: Cystitis
     Route: 048
     Dates: start: 20200512, end: 20200519

REACTIONS (1)
  - Agranulocytosis [Unknown]
